FAERS Safety Report 7475883-1 (Version None)
Quarter: 2011Q2

REPORT INFORMATION
  Report Type: 
  Country: None (occurrence: None)
  Receive Date: 20110512
  Receipt Date: 20110510
  Transmission Date: 20111010
  Serious: Yes (Other)
  Sender: FDA-Public Use
  Company Number: A0926745A

PATIENT
  Age: 38 Year
  Sex: Female

DRUGS (1)
  1. NICODERM CQ [Suspect]
     Route: 062
     Dates: start: 20110509, end: 20110509

REACTIONS (9)
  - APPLICATION SITE PAIN [None]
  - PYREXIA [None]
  - NAUSEA [None]
  - HEADACHE [None]
  - DIZZINESS [None]
  - MYOCARDIAL INFARCTION [None]
  - SOMNOLENCE [None]
  - VOMITING [None]
  - ASTHENIA [None]
